FAERS Safety Report 13837794 (Version 1)
Quarter: 2017Q3

REPORT INFORMATION
  Report Type: Spontaneous
  Country: GB (occurrence: GB)
  Receive Date: 20170806
  Receipt Date: 20170806
  Transmission Date: 20171127
  Serious: Yes (Disabling)
  Sender: FDA-Public Use
  Company Number: GB-TEVA-792028ACC

PATIENT
  Age: 26 Year
  Sex: Female
  Weight: 67.58 kg

DRUGS (2)
  1. MIRTAZAPINE HYDROCHLORIDE [Concomitant]
     Active Substance: MIRTAZAPINE
  2. DIAZEPAM. [Suspect]
     Active Substance: DIAZEPAM
     Route: 048
     Dates: start: 20160501

REACTIONS (1)
  - Drug withdrawal syndrome [Not Recovered/Not Resolved]

NARRATIVE: CASE EVENT DATE: 20160801
